FAERS Safety Report 8737492 (Version 2)
Quarter: 2013Q4

REPORT INFORMATION
  Report Type: Spontaneous
  Country: JP (occurrence: JP)
  Receive Date: 20120822
  Receipt Date: 20131101
  Transmission Date: 20140711
  Serious: Yes (Other)
  Sender: FDA-Public Use
  Company Number: JP-009507513-1208JPN000859

PATIENT
  Sex: Male

DRUGS (3)
  1. PEGINTRON [Suspect]
     Route: 058
  2. REBETOL [Suspect]
     Route: 048
  3. TELAVIC [Suspect]
     Route: 048

REACTIONS (1)
  - Convulsion [Unknown]
